FAERS Safety Report 8233288 (Version 2)
Quarter: 2013Q1

REPORT INFORMATION
  Report Type: Spontaneous
  Country: US (occurrence: US)
  Receive Date: 20111107
  Receipt Date: 20130215
  Transmission Date: 20140127
  Serious: Yes (Other)
  Sender: FDA-Public Use
  Company Number: US-BAYER-2011-105956

PATIENT
  Age: 40 Year
  Sex: Female
  Weight: 74.83 kg

DRUGS (20)
  1. YASMIN [Suspect]
     Indication: CONTRACEPTION
     Dosage: UNK
     Dates: start: 2005, end: 2007
  2. YASMIN [Suspect]
     Indication: CONTRACEPTION
     Dosage: UNK
     Dates: start: 2007, end: 2008
  3. DURADRIN [Concomitant]
     Dosage: UNK
     Dates: start: 2000
  4. MIDRIN [Concomitant]
     Indication: MIGRAINE
     Dosage: UNK
     Dates: start: 2000
  5. ALAVERT [Concomitant]
     Indication: MULTIPLE ALLERGIES
     Dosage: 10 MG, UNK
     Route: 048
     Dates: start: 2006
  6. ALBUTEROL [Concomitant]
     Indication: ASTHMA
     Dosage: UNK
     Dates: start: 2006
  7. OMEPRAZOLE [Concomitant]
     Indication: GASTROOESOPHAGEAL REFLUX DISEASE
     Dosage: 20 MG, UNK
     Dates: start: 2007
  8. CELEXA [Concomitant]
     Indication: DEPRESSION
     Dosage: UNK
     Dates: start: 2007
  9. FLEXERIL [Concomitant]
     Indication: TEMPOROMANDIBULAR JOINT SYNDROME
     Dosage: UNK
     Dates: start: 2007
  10. MOTRIN [Concomitant]
     Indication: TEMPOROMANDIBULAR JOINT SYNDROME
     Dosage: UNK
     Dates: start: 2007
  11. XANAX [Concomitant]
     Indication: ANXIETY
     Dosage: UNK
     Dates: start: 2007
  12. VITAMIN B [Concomitant]
     Indication: NUTRITIONAL SUPPLEMENTATION
     Dosage: UNK
     Dates: start: 2005
  13. FLUCONAZOLE [Concomitant]
     Dosage: 150 MG, UNK
     Route: 048
  14. ADVAIR [Concomitant]
  15. ZYRTEC [Concomitant]
     Dosage: AS NEEDED
     Route: 048
  16. FLONASE [Concomitant]
     Route: 045
  17. Z-PAK [Concomitant]
     Dosage: 250 UNK, UNK
     Route: 048
  18. CLINDAMYCIN [Concomitant]
     Dosage: 1% TOPICAL TO THE FACE
     Route: 061
  19. XOPENEX [Concomitant]
     Dosage: 45 ?G, INHALER
  20. IMITREX [Concomitant]
     Dosage: 50 MG, UNK
     Route: 048

REACTIONS (8)
  - Pulmonary embolism [None]
  - Pain [None]
  - Injury [None]
  - General physical health deterioration [None]
  - Emotional distress [None]
  - Anxiety [None]
  - Asthenia [None]
  - Dyspnoea [None]
